FAERS Safety Report 5966375-7 (Version None)
Quarter: 2008Q4

REPORT INFORMATION
  Report Type: 
  Country: None (occurrence: None)
  Receive Date: 20081125
  Receipt Date: 20081124
  Transmission Date: 20090506
  Serious: Yes (Hospitalization)
  Sender: FDA-Public Use
  Company Number: US-GILEAD-2008-0018964

PATIENT
  Sex: Male

DRUGS (1)
  1. LETAIRIS [Suspect]
     Route: 048
     Dates: start: 20081015, end: 20081121

REACTIONS (5)
  - ATRIAL FIBRILLATION [None]
  - FLUID RETENTION [None]
  - OEDEMA [None]
  - RENAL IMPAIRMENT [None]
  - RIGHT VENTRICULAR FAILURE [None]
